FAERS Safety Report 5163494-2 (Version None)
Quarter: 2006Q4

REPORT INFORMATION
  Report Type: 
  Country: None (occurrence: None)
  Receive Date: 20061124
  Receipt Date: 20061110
  Transmission Date: 20070319
  Serious: Yes (Hospitalization)
  Sender: FDA-Public Use
  Company Number: 2006138064

PATIENT
  Age: 60 Year
  Sex: Male
  Weight: 71.2147 kg

DRUGS (11)
  1. SUTENT [Suspect]
     Indication: PROSTATE CANCER
     Dosage: 50 MG (50 MG, 1 IN 1 D), ORAL
     Route: 048
     Dates: start: 20060316
  2. COMPAZINE [Concomitant]
  3. LOMOTIL [Concomitant]
  4. ZOFRAN [Concomitant]
  5. ARANESP [Concomitant]
  6. LUPRON [Concomitant]
  7. PERCOCET [Concomitant]
  8. IBUPROFEN [Concomitant]
  9. ATENOLOL [Concomitant]
  10. HYDROCHLOROTHIAZIDE [Concomitant]
  11. MORPHINE SULFATE [Concomitant]

REACTIONS (5)
  - ABDOMINAL ABSCESS [None]
  - ELECTROCARDIOGRAM ST SEGMENT DEPRESSION [None]
  - ELECTROCARDIOGRAM T WAVE INVERSION [None]
  - PERITONITIS [None]
  - SMALL INTESTINAL OBSTRUCTION [None]
